FAERS Safety Report 20751695 (Version 5)
Quarter: 2022Q3

REPORT INFORMATION
  Report Type: Report from Study
  Country: US (occurrence: US)
  Receive Date: 20220426
  Receipt Date: 20220802
  Transmission Date: 20221027
  Serious: No
  Sender: FDA-Public Use
  Company Number: US-NOVARTISPH-NVSC2022US092052

PATIENT
  Sex: Female

DRUGS (3)
  1. ENTRESTO [Suspect]
     Active Substance: SACUBITRIL\VALSARTAN
     Indication: Product used for unknown indication
     Dosage: 50 MG, BID, (24/26 MG)
     Route: 048
  2. ENTRESTO [Suspect]
     Active Substance: SACUBITRIL\VALSARTAN
     Dosage: 100 MG, BID, (49/51 MG)
     Route: 048
     Dates: start: 2021
  3. ENTRESTO [Suspect]
     Active Substance: SACUBITRIL\VALSARTAN
     Dosage: UNK (INCREASED TO MID DOSE)
     Route: 048

REACTIONS (8)
  - Weight decreased [Unknown]
  - Chest pain [Unknown]
  - Blood sodium decreased [Unknown]
  - Gait disturbance [Unknown]
  - Pericardial cyst [Unknown]
  - Decreased activity [Unknown]
  - Dysstasia [Unknown]
  - Post-traumatic stress disorder [Unknown]
